FAERS Safety Report 12609269 (Version 2)
Quarter: 2020Q4

REPORT INFORMATION
  Report Type: Spontaneous
  Country: GB (occurrence: GB)
  Receive Date: 20160801
  Receipt Date: 20201120
  Transmission Date: 20210113
  Serious: Yes (Other)
  Sender: FDA-Public Use
  Company Number: GB-AUROBINDO-AUR-APL-2016-09607

PATIENT
  Age: 28 Year
  Sex: Female

DRUGS (4)
  1. DIAZEPAM. [Concomitant]
     Active Substance: DIAZEPAM
     Indication: PRODUCT USED FOR UNKNOWN INDICATION
     Route: 065
     Dates: start: 20011121
  2. PAROXETINE HYDROCHLORIDE. [Suspect]
     Active Substance: PAROXETINE HYDROCHLORIDE
     Indication: PRODUCT USED FOR UNKNOWN INDICATION
     Dosage: UNK
     Route: 048
     Dates: start: 20000126, end: 20021021
  3. SEROXAT [Suspect]
     Active Substance: PAROXETINE HYDROCHLORIDE
     Indication: PRODUCT USED FOR UNKNOWN INDICATION
     Dosage: 30 MG, UNK
     Route: 065
     Dates: start: 2000
  4. PAROXETINE FILM COATED TABLETS [Suspect]
     Active Substance: PAROXETINE
     Indication: PRODUCT USED FOR UNKNOWN INDICATION
     Dosage: UNK
     Route: 065
     Dates: start: 20020110, end: 20160311

REACTIONS (17)
  - Hyperhidrosis [Unknown]
  - Drug withdrawal syndrome [Unknown]
  - Movement disorder [Unknown]
  - Migraine with aura [Unknown]
  - Anxiety [Unknown]
  - Fatigue [Unknown]
  - Suicidal ideation [Unknown]
  - Psychotic disorder [Unknown]
  - Nausea [Unknown]
  - Depression [Unknown]
  - Flat affect [Unknown]
  - Agoraphobia [Unknown]
  - Paraesthesia [Unknown]
  - Dizziness [Unknown]
  - Neurosis [Unknown]
  - Panic attack [Unknown]
  - Stress [Unknown]

NARRATIVE: CASE EVENT DATE: 20010312
